FAERS Safety Report 5383406-6 (Version None)
Quarter: 2007Q3

REPORT INFORMATION
  Report Type: 
  Country: None (occurrence: None)
  Receive Date: 20070705
  Receipt Date: 20070627
  Transmission Date: 20080115
  Serious: Yes (Life-Threatening, Hospitalization)
  Sender: FDA-Public Use
  Company Number: DSU-2007-00332

PATIENT
  Age: 85 Year
  Sex: Female
  Weight: 55 kg

DRUGS (7)
  1. IXIA (OLMESARTAN MEDOXOMIL) (20 MILLIGRAM, TABLET) (OLMESARTAN MEDOXOM [Suspect]
     Indication: HYPERTENSION
     Dosage: 20 MG (20 MG, 1 TAB DAILY) PER  ORAL
     Route: 048
     Dates: start: 20060207, end: 20070515
  2. ALDACTONE [Suspect]
     Indication: HYPERTENSION
     Dosage: 100 MG (100 MG, 1 TAB DAILY), PER ORAL
     Route: 048
     Dates: start: 20060207, end: 20070515
  3. TRYPTIZOL (AMITRIPTYLINE HYDROCHLORIDE) (AMITRIPTYLINE HYDROCHLORIDE) [Concomitant]
  4. OMEPRAZOL (OMEPRAZOLE) (OMEPRAZOLE) [Concomitant]
  5. FERO-GRADUMET (FERROUS SULFATE) (FERROUS SULFATE) [Concomitant]
  6. ACFOL (FOLIC ACID) (FOLIC ACID) [Concomitant]
  7. CARRELDON RETARD (DILTIAZEM) (DILTIAZEM) [Concomitant]

REACTIONS (3)
  - DRUG INTERACTION [None]
  - RENAL FAILURE ACUTE [None]
  - SYNCOPE [None]
